FAERS Safety Report 11002986 (Version 2)
Quarter: 2015Q2

REPORT INFORMATION
  Report Type: Other
  Country: GB (occurrence: GB)
  Receive Date: 20150408
  Receipt Date: 20150428
  Transmission Date: 20150821
  Serious: Yes (Hospitalization, Other)
  Sender: FDA-Public Use
  Company Number: GB-MYLANLABS-2015M1010220

PATIENT

DRUGS (4)
  1. SUTENT [Suspect]
     Active Substance: SUNITINIB MALATE
     Indication: RENAL CELL CARCINOMA
     Dosage: 25 MG, UNK
     Dates: start: 201305
  2. BISOPROLOL [Suspect]
     Active Substance: BISOPROLOL
     Indication: PERICARDITIS
  3. THYROXINE [Concomitant]
     Active Substance: LEVOTHYROXINE
     Dosage: 75 MG, UNK
     Dates: start: 201408
  4. BISOPROLOL [Suspect]
     Active Substance: BISOPROLOL
     Indication: CARDIAC DISORDER
     Dosage: 2.5 MG, UNK
     Dates: start: 201501

REACTIONS (12)
  - Dyspnoea [Unknown]
  - Blood pressure increased [Unknown]
  - Fatigue [Unknown]
  - Chest discomfort [Not Recovered/Not Resolved]
  - Sluggishness [Not Recovered/Not Resolved]
  - Pericardial effusion [Not Recovered/Not Resolved]
  - Ear pain [Unknown]
  - Myocardial infarction [Not Recovered/Not Resolved]
  - Pain in jaw [Not Recovered/Not Resolved]
  - Cardiac disorder [Unknown]
  - Pericarditis [Not Recovered/Not Resolved]
  - Chest pain [Not Recovered/Not Resolved]

NARRATIVE: CASE EVENT DATE: 2015
